FAERS Safety Report 6942963-6 (Version None)
Quarter: 2010Q3

REPORT INFORMATION
  Report Type: 
  Country: None (occurrence: None)
  Receive Date: 20100823
  Receipt Date: 20100813
  Transmission Date: 20110219
  Serious: Yes (Hospitalization, Disabling)
  Sender: FDA-Public Use
  Company Number: 104526

PATIENT
  Age: 70 Year
  Sex: Male

DRUGS (1)
  1. CIPROFLOXACIN INJ. USP 10MG/ ML - BEDFORD LABS, INC. [Suspect]
     Indication: CELLULITIS
     Dosage: 750MG TWICE DAILY

REACTIONS (8)
  - DECREASED APPETITE [None]
  - HEADACHE [None]
  - HYPHAEMA [None]
  - INTERNATIONAL NORMALISED RATIO INCREASED [None]
  - INTRAOCULAR PRESSURE INCREASED [None]
  - NAUSEA [None]
  - PYREXIA [None]
  - VISUAL ACUITY REDUCED [None]
